FAERS Safety Report 5706911-9 (Version None)
Quarter: 2008Q2

REPORT INFORMATION
  Report Type: 
  Country: None (occurrence: None)
  Receive Date: 20080416
  Receipt Date: 20080407
  Transmission Date: 20081010
  Serious: Yes (Other)
  Sender: FDA-Public Use
  Company Number: US-ELI_LILLY_AND_COMPANY-US200804001846

PATIENT
  Sex: Male

DRUGS (8)
  1. HUMALOG [Suspect]
     Dosage: UNK, BEFORE BREAKFAST
     Dates: start: 20070101
  2. HUMALOG [Suspect]
     Dosage: UNK, BEFORE LUNCH
     Dates: start: 20070101
  3. HUMALOG [Suspect]
     Dosage: UNK, BEFORE DINNER
     Dates: start: 20070101
  4. HUMALOG [Suspect]
     Dosage: 13 U, UNK
     Dates: start: 20080131, end: 20080131
  5. HUMULIN N [Suspect]
     Dosage: UNK, UNK
     Dates: start: 20060101, end: 20061013
  6. BYETTA [Concomitant]
     Dosage: 5 UG, UNK
     Dates: start: 20061013
  7. BYETTA [Concomitant]
     Dosage: 10 UG, UNK
  8. LANTUS [Concomitant]

REACTIONS (9)
  - ABDOMINAL PAIN UPPER [None]
  - BLOOD GLUCOSE DECREASED [None]
  - BLOOD GLUCOSE INCREASED [None]
  - BLOOD PRESSURE INCREASED [None]
  - DAYDREAMING [None]
  - DISORIENTATION [None]
  - DYSARTHRIA [None]
  - GASTRIC DISORDER [None]
  - ROAD TRAFFIC ACCIDENT [None]
